FAERS Safety Report 12983410 (Version 1)
Quarter: 2016Q4

REPORT INFORMATION
  Report Type: Other
  Country: DK (occurrence: DK)
  Receive Date: 20161129
  Receipt Date: 20161129
  Transmission Date: 20170207
  Serious: Yes (Disabling)
  Sender: FDA-Public Use
  Company Number: DK-DEXPHARM-20162284

PATIENT
  Age: 53 Year
  Sex: Male

DRUGS (5)
  1. IBUPROFEN. [Suspect]
     Active Substance: IBUPROFEN
     Dates: start: 20140226
  2. VITAMINS [Concomitant]
     Active Substance: VITAMINS
  3. IBUPROFEN. [Suspect]
     Active Substance: IBUPROFEN
     Indication: ARTHRALGIA
  4. DICLOFENAC [Suspect]
     Active Substance: DICLOFENAC
     Dates: start: 20140226
  5. DICLOFENAC [Suspect]
     Active Substance: DICLOFENAC
     Indication: ARTHRALGIA

REACTIONS (1)
  - Hypophosphataemia [Recovered/Resolved]
